FAERS Safety Report 26061188 (Version 1)
Quarter: 2025Q4

REPORT INFORMATION
  Report Type: Spontaneous
  Country: EU (occurrence: EU)
  Receive Date: 20251118
  Receipt Date: 20251118
  Transmission Date: 20260118
  Serious: Yes (Other)
  Sender: REGENERON
  Company Number: EU-REGENERON PHARMACEUTICALS, INC.-2025-181350

PATIENT
  Age: 80 Year
  Sex: Female

DRUGS (1)
  1. LIBTAYO [Suspect]
     Active Substance: CEMIPLIMAB-RWLC
     Indication: Squamous cell carcinoma of skin
     Dosage: 350 MG, Q3W
     Route: 065
     Dates: start: 20220415, end: 202206

REACTIONS (3)
  - Hyperthyroidism [Recovered/Resolved]
  - Hypothyroidism [Recovered/Resolved]
  - Hepatic enzyme increased [Recovered/Resolved]

NARRATIVE: CASE EVENT DATE: 20220605
